FAERS Safety Report 19886102 (Version 1)
Quarter: 2021Q3

REPORT INFORMATION
  Report Type: Report from Study
  Country: US (occurrence: US)
  Receive Date: 20210927
  Receipt Date: 20210927
  Transmission Date: 20211014
  Serious: Yes (Hospitalization)
  Sender: FDA-Public Use
  Company Number: US-GILEAD-2021-0549695

PATIENT
  Age: 14 Year
  Sex: Male

DRUGS (3)
  1. PULMOZYME [Concomitant]
     Active Substance: DORNASE ALFA
  2. XOLAIR [Concomitant]
     Active Substance: OMALIZUMAB
  3. AZTREONAM LYSINE [Suspect]
     Active Substance: AZTREONAM LYSINE
     Indication: CYSTIC FIBROSIS
     Dosage: 75 MG, TID
     Route: 055
     Dates: start: 202107

REACTIONS (1)
  - Paranasal sinus polypectomy [Unknown]

NARRATIVE: CASE EVENT DATE: 202107
